FAERS Safety Report 8876383 (Version 2)
Quarter: 2013Q2

REPORT INFORMATION
  Report Type: Spontaneous
  Country: US (occurrence: None)
  Receive Date: 20120426
  Receipt Date: 20120703
  Transmission Date: 20140414
  Serious: Yes (Other)
  Sender: FDA-Public Use
  Company Number: PHEH2012US004596

PATIENT
  Sex: Male

DRUGS (9)
  1. GILENYA [Suspect]
     Route: 048
  2. METHADONE (METHADONE) TABLET [Concomitant]
  3. GABAPENTIN (GABAPENTIN) CAPSULE [Concomitant]
  4. ADVIL (MEFENAMIC ACID) TABLET [Concomitant]
  5. PROZAC (FLUOXETINE HYDROCHLORIDE) CAPSULE  ADVIL (MEFENAMIC ACID) TABLET [Concomitant]
  6. SENNA (SENNA, SENNA ALEXANDRINA) CAPSULE [Concomitant]
  7. MORPHINE (MORPHINE) [Concomitant]
  8. CRANBERRY CAPSULE [Concomitant]
  9. NORCO (HYDROCODONE BITARTRATE, PARACETAMOL) TABLET [Concomitant]

REACTIONS (4)
  - Abdominal pain [None]
  - Depressed mood [None]
  - Headache [None]
  - Abnormal behaviour [None]
